FAERS Safety Report 24331410 (Version 2)
Quarter: 2024Q4

REPORT INFORMATION
  Report Type: Report from Study
  Country: US (occurrence: US)
  Receive Date: 20240918
  Receipt Date: 20241017
  Transmission Date: 20250114
  Serious: Yes (Other)
  Sender: ALEXION PHARMACEUTICALS
  Company Number: 2024A211751

PATIENT

DRUGS (4)
  1. TAGRISSO [Suspect]
     Active Substance: OSIMERTINIB
  2. TAGRISSO [Suspect]
     Active Substance: OSIMERTINIB
  3. TAGRISSO [Suspect]
     Active Substance: OSIMERTINIB
  4. TAGRISSO [Suspect]
     Active Substance: OSIMERTINIB

REACTIONS (11)
  - Lung opacity [Not Recovered/Not Resolved]
  - Nausea [Recovered/Resolved]
  - Headache [Recovered/Resolved]
  - Thirst [Not Recovered/Not Resolved]
  - Cough [Not Recovered/Not Resolved]
  - Fatigue [Not Recovered/Not Resolved]
  - Dyspnoea exertional [Not Recovered/Not Resolved]
  - Asthenia [Not Recovered/Not Resolved]
  - Hypersomnia [Not Recovered/Not Resolved]
  - Diarrhoea [Recovered/Resolved]
  - Intentional dose omission [Not Recovered/Not Resolved]
